FAERS Safety Report 15607245 (Version 1)
Quarter: 2018Q4

REPORT INFORMATION
  Report Type: Spontaneous
  Country: US (occurrence: US)
  Receive Date: 20181106
  Receipt Date: 20181106
  Transmission Date: 20190205
  Serious: Yes (Other)
  Sender: FDA-Public Use
  Company Number: None

PATIENT
  Age: 62 Year
  Sex: Male

DRUGS (1)
  1. EVOTAZ [Suspect]
     Active Substance: ATAZANAVIR SULFATE\COBICISTAT
     Indication: HIV INFECTION
     Route: 048
     Dates: start: 20181013, end: 20181020

REACTIONS (6)
  - Nausea [None]
  - Decreased appetite [None]
  - Headache [None]
  - Diplopia [None]
  - Condition aggravated [None]
  - Asthenia [None]

NARRATIVE: CASE EVENT DATE: 20181013
